FAERS Safety Report 22105027 (Version 4)
Quarter: 2023Q2

REPORT INFORMATION
  Report Type: Spontaneous
  Country: JP (occurrence: JP)
  Receive Date: 20230316
  Receipt Date: 20230528
  Transmission Date: 20230721
  Serious: Yes (Hospitalization)
  Sender: FDA-Public Use
  Company Number: JP-002147023-NVSJ2023JP004786

PATIENT
  Age: 93 Year
  Sex: Female

DRUGS (1)
  1. ENTRESTO [Suspect]
     Active Substance: SACUBITRIL\VALSARTAN
     Indication: Cardiac failure chronic
     Dosage: 50 MG, BID
     Route: 048

REACTIONS (2)
  - Hyperkalaemia [Recovered/Resolved]
  - Fracture [Recovered/Resolved]

NARRATIVE: CASE EVENT DATE: 20230310
